FAERS Safety Report 12238218 (Version 3)
Quarter: 2016Q3

REPORT INFORMATION
  Report Type: Spontaneous
  Country: US (occurrence: US)
  Receive Date: 20160405
  Receipt Date: 20160729
  Transmission Date: 20161109
  Serious: Yes (Life-Threatening, Hospitalization)
  Sender: FDA-Public Use
  Company Number: US-ELI_LILLY_AND_COMPANY-US201603009730

PATIENT
  Age: 53 Year
  Sex: Female
  Weight: 121.54 kg

DRUGS (6)
  1. PLAQUENIL                          /00072602/ [Suspect]
     Active Substance: HYDROXYCHLOROQUINE DIPHOSPHATE
     Indication: SYSTEMIC LUPUS ERYTHEMATOSUS
     Dosage: UNK, UNKNOWN
     Route: 065
  2. TYVASO [Suspect]
     Active Substance: TREPROSTINIL
     Indication: PULMONARY HYPERTENSION
     Dosage: UNK, QID
     Route: 055
     Dates: start: 20150423, end: 20151217
  3. BERAPROST SODIUM [Suspect]
     Active Substance: BERAPROST SODIUM
     Dosage: 120 UG, QD
     Route: 065
     Dates: start: 20150828
  4. OPSUMIT [Concomitant]
     Active Substance: MACITENTAN
     Dosage: UNK, UNKNOWN
     Route: 065
  5. BERAPROST SODIUM [Suspect]
     Active Substance: BERAPROST SODIUM
     Indication: PRODUCT USED FOR UNKNOWN INDICATION
     Dosage: 30 UG, QD
     Route: 048
     Dates: start: 20150724, end: 20151217
  6. ADCIRCA [Suspect]
     Active Substance: TADALAFIL
     Indication: PULMONARY ARTERIAL HYPERTENSION
     Dosage: UNK, UNKNOWN
     Route: 048
     Dates: start: 201402, end: 20151221

REACTIONS (6)
  - Multiple organ dysfunction syndrome [Recovered/Resolved]
  - Staphylococcal infection [Recovered/Resolved]
  - Acute kidney injury [Recovered/Resolved]
  - Cellulitis [Recovered/Resolved]
  - Panniculitis [Recovered/Resolved]
  - Septic shock [Recovered/Resolved]

NARRATIVE: CASE EVENT DATE: 20151201
